FAERS Safety Report 5525498-7 (Version None)
Quarter: 2007Q4

REPORT INFORMATION
  Report Type: 
  Country: None (occurrence: None)
  Receive Date: 20071126
  Receipt Date: 20071113
  Transmission Date: 20080405
  Serious: Yes (Other)
  Sender: FDA-Public Use
  Company Number: US-AMGEN-KDL244390

PATIENT
  Sex: Male

DRUGS (9)
  1. ENBREL [Suspect]
     Indication: RHEUMATOID ARTHRITIS
     Route: 058
     Dates: start: 20010101
  2. CYTOMEL [Concomitant]
  3. METHOTREXATE [Concomitant]
  4. PREDNISONE TAB [Concomitant]
  5. LEVOXYL [Concomitant]
  6. FOLIC ACID [Concomitant]
  7. VYTORIN [Concomitant]
  8. NAPROXEN [Concomitant]
  9. PROSCAR [Concomitant]

REACTIONS (1)
  - MUIR-TORRE SYNDROME [None]
